FAERS Safety Report 9730013 (Version 1)
Quarter: 2013Q4

REPORT INFORMATION
  Report Type: Spontaneous
  Country: FI (occurrence: None)
  Receive Date: 20131203
  Receipt Date: 20131203
  Transmission Date: 20140711
  Serious: Yes (Other)
  Sender: FDA-Public Use
  Company Number: 2013P1021311

PATIENT
  Age: 61 Year
  Sex: Male

DRUGS (13)
  1. PANTOPRAZOLE [Suspect]
  2. VANCOMYCIN [Suspect]
  3. RIFAMPICIN [Suspect]
  4. MEROPENEM [Suspect]
  5. CEFUROXIME [Suspect]
  6. CLOXACILLIN [Suspect]
  7. NAPROXEN [Concomitant]
  8. PARACETAMOL [Concomitant]
  9. CODEINE PHOSPHATE [Concomitant]
  10. METRONIDAZOLE [Concomitant]
  11. LEVOFLOXACIN [Concomitant]
  12. METHYLPREDNISOLONE [Concomitant]
  13. DAPTOMYCIN [Concomitant]

REACTIONS (3)
  - Pyrexia [None]
  - Drug reaction with eosinophilia and systemic symptoms [None]
  - Toxic epidermal necrolysis [None]
